FAERS Safety Report 7605920-2 (Version None)
Quarter: 2011Q3

REPORT INFORMATION
  Report Type: 
  Country: None (occurrence: None)
  Receive Date: 20110713
  Receipt Date: 20110629
  Transmission Date: 20111222
  Serious: Yes (Other)
  Sender: FDA-Public Use
  Company Number: PHHY2011BR55089

PATIENT
  Age: 45 Year
  Sex: Female

DRUGS (1)
  1. DIOVAN [Suspect]
     Indication: BLOOD PRESSURE MANAGEMENT
     Dosage: UNK

REACTIONS (1)
  - DIABETES MELLITUS [None]
